FAERS Safety Report 23635193 (Version 6)
Quarter: 2025Q1

REPORT INFORMATION
  Report Type: Report from Study
  Country: JP (occurrence: JP)
  Receive Date: 20240315
  Receipt Date: 20250217
  Transmission Date: 20250408
  Serious: Yes (Other)
  Sender: UCB
  Company Number: JP-UCBJ-CD202301585UCBPHAPROD

PATIENT
  Age: 3 Year
  Sex: Male
  Weight: 15.4 kg

DRUGS (9)
  1. FENFLURAMINE HYDROCHLORIDE [Suspect]
     Active Substance: FENFLURAMINE HYDROCHLORIDE
     Indication: Severe myoclonic epilepsy of infancy
     Dosage: 1.2 MILLIGRAM, ONCE DAILY (QD)
     Route: 048
     Dates: start: 20230110
  2. FENFLURAMINE HYDROCHLORIDE [Suspect]
     Active Substance: FENFLURAMINE HYDROCHLORIDE
     Dosage: 3 MILLIGRAM, ONCE DAILY (QD)
     Route: 048
     Dates: start: 20230119
  3. FENFLURAMINE HYDROCHLORIDE [Suspect]
     Active Substance: FENFLURAMINE HYDROCHLORIDE
     Dosage: 1.5 MILLIGRAM, ONCE DAILY (QD)
     Route: 048
     Dates: start: 20230126
  4. FENFLURAMINE HYDROCHLORIDE [Suspect]
     Active Substance: FENFLURAMINE HYDROCHLORIDE
     Dosage: 1.76 MILLIGRAM, ONCE DAILY (QD)
     Route: 048
     Dates: start: 20230214
  5. FENFLURAMINE HYDROCHLORIDE [Suspect]
     Active Substance: FENFLURAMINE HYDROCHLORIDE
     Dosage: 0.09 MILLIGRAM, 2X/DAY (BID)
     Route: 048
     Dates: start: 20241015
  6. VALPROATE SODIUM [Concomitant]
     Active Substance: VALPROATE SODIUM
     Indication: Severe myoclonic epilepsy of infancy
     Dosage: 600 MILLIGRAM, ONCE DAILY (QD) POR
     Route: 048
     Dates: start: 20200507
  7. MYSTAN [Concomitant]
     Active Substance: CLOBAZAM
     Indication: Severe myoclonic epilepsy of infancy
     Dosage: 1 MILLIGRAM, ONCE DAILY (QD) POR
     Route: 048
     Dates: start: 20201031, end: 20230427
  8. POTASSIUM BROMIDE [Concomitant]
     Active Substance: POTASSIUM BROMIDE
     Indication: Severe myoclonic epilepsy of infancy
     Dosage: 350 MILLIGRAM, ONCE DAILY (QD) POR
     Route: 048
     Dates: start: 20210114
  9. LEVOCARNITINE [Concomitant]
     Active Substance: LEVOCARNITINE
     Indication: Product used for unknown indication
     Dosage: 2 MILLILITER, ONCE DAILY (QD) POR
     Route: 048

REACTIONS (4)
  - Tricuspid valve incompetence [Unknown]
  - Off label use [Unknown]
  - Prescribed overdose [Unknown]
  - Prescribed underdose [Unknown]

NARRATIVE: CASE EVENT DATE: 20230110
